FAERS Safety Report 8559911-8 (Version None)
Quarter: 2012Q3

REPORT INFORMATION
  Report Type: 
  Country: None (occurrence: None)
  Receive Date: 20120802
  Receipt Date: 20120727
  Transmission Date: 20120928
  Serious: Yes (Disabling)
  Sender: FDA-Public Use
  Company Number: PHHY2012GB064943

PATIENT
  Age: 72 Year
  Sex: Male

DRUGS (3)
  1. BISOPROLOL FUMARATE [Suspect]
     Indication: ATRIAL FIBRILLATION
     Dosage: 5 MG
     Dates: end: 20120704
  2. METOPROLOL TARTRATE [Suspect]
     Indication: ATRIAL FIBRILLATION
     Route: 048
     Dates: end: 20111101
  3. WARFARIN [Concomitant]
     Route: 048

REACTIONS (2)
  - ASTHENIA [None]
  - FATIGUE [None]
